FAERS Safety Report 7967404-1 (Version None)
Quarter: 2011Q4

REPORT INFORMATION
  Report Type: 
  Country: None (occurrence: None)
  Receive Date: 20111209
  Receipt Date: 20111124
  Transmission Date: 20120403
  Serious: Yes (Hospitalization)
  Sender: FDA-Public Use
  Company Number: FR-CELGENEUS-056-21880-11113579

PATIENT
  Sex: Male

DRUGS (6)
  1. REVLIMID [Suspect]
     Route: 048
     Dates: end: 20111101
  2. BORTEZOMIB [Suspect]
     Indication: MULTIPLE MYELOMA
     Route: 065
     Dates: start: 20111028
  3. DEXAMETHASONE [Suspect]
     Route: 065
     Dates: end: 20111101
  4. BORTEZOMIB [Suspect]
     Route: 065
     Dates: end: 20111101
  5. REVLIMID [Suspect]
     Indication: MULTIPLE MYELOMA
     Route: 048
     Dates: start: 20111028
  6. DEXAMETHASONE [Suspect]
     Indication: MULTIPLE MYELOMA
     Route: 065
     Dates: start: 20111028

REACTIONS (3)
  - HEMIPLEGIA [None]
  - LUNG DISORDER [None]
  - CAROTID ARTERY THROMBOSIS [None]
